FAERS Safety Report 22532321 (Version 3)
Quarter: 2024Q2

REPORT INFORMATION
  Report Type: Report from Study
  Country: US (occurrence: US)
  Receive Date: 20230607
  Receipt Date: 20240524
  Transmission Date: 20240715
  Serious: Yes (Hospitalization)
  Sender: FDA-Public Use
  Company Number: US-ALNYLAM PHARMACEUTICALS, INC.-ALN-2023-002620

PATIENT

DRUGS (3)
  1. GIVLAARI [Suspect]
     Active Substance: GIVOSIRAN SODIUM
     Indication: Porphyria acute
     Dosage: UNK
     Route: 065
     Dates: start: 20220913
  2. GIVLAARI [Suspect]
     Active Substance: GIVOSIRAN SODIUM
     Dosage: 211.50 (UNITS NOT SPECIFIED), MONTHLY
     Route: 058
     Dates: start: 20221104
  3. GIVLAARI [Suspect]
     Active Substance: GIVOSIRAN SODIUM
     Dosage: 209 MILLIGRAM (189 MG/ML), EVERY 28 DAYS
     Route: 058
     Dates: start: 20221104, end: 20221104

REACTIONS (4)
  - Appendicitis [Recovering/Resolving]
  - Appendicectomy [Recovering/Resolving]
  - Intestinal obstruction [Unknown]
  - Heart rate increased [Unknown]

NARRATIVE: CASE EVENT DATE: 20230528
